FAERS Safety Report 5272213-0 (Version None)
Quarter: 2007Q1

REPORT INFORMATION
  Report Type: 
  Country: None (occurrence: None)
  Receive Date: 20070322
  Receipt Date: 20061205
  Transmission Date: 20070707
  Serious: No
  Sender: FDA-Public Use
  Company Number: US-GLAXOSMITHKLINE-A0630438A

PATIENT
  Age: 73 Year
  Sex: Female

DRUGS (17)
  1. AVANDARYL [Suspect]
     Dosage: 1TAB PER DAY
     Route: 048
     Dates: start: 20061129
  2. LEVOTHYROXINE SODIUM [Concomitant]
  3. ZOLOFT [Concomitant]
  4. CELEBREX [Concomitant]
  5. MUCINEX [Concomitant]
  6. RANITIDINE [Concomitant]
  7. LISINOPRIL [Concomitant]
  8. SINGULAIR [Concomitant]
  9. PRILOSEC [Concomitant]
  10. MYOCALCINNS [Concomitant]
  11. ADVAIR DISKUS 100/50 [Concomitant]
  12. COMBIVENT [Concomitant]
  13. REGLAN [Concomitant]
  14. OXYCODONE HCL [Concomitant]
  15. ALPRAZOLAM [Concomitant]
  16. FLONASE [Concomitant]
  17. COREG [Concomitant]

REACTIONS (1)
  - ANOREXIA [None]
